FAERS Safety Report 15845473 (Version 1)
Quarter: 2019Q1

REPORT INFORMATION
  Report Type: Spontaneous
  Country: US (occurrence: US)
  Receive Date: 20190119
  Receipt Date: 20190119
  Transmission Date: 20190417
  Serious: No
  Sender: FDA-Public Use
  Company Number: US-TEVA-2018-US-992260

PATIENT
  Sex: Male

DRUGS (2)
  1. TRYPTOPHAN [Suspect]
     Active Substance: TRYPTOPHAN
  2. TRAZODONE [Suspect]
     Active Substance: TRAZODONE HYDROCHLORIDE

REACTIONS (3)
  - Contraindicated product administered [Unknown]
  - Alopecia [Unknown]
  - Blood pressure fluctuation [Unknown]
